FAERS Safety Report 17174139 (Version 2)
Quarter: 2020Q1

REPORT INFORMATION
  Report Type: Spontaneous
  Country: US (occurrence: US)
  Receive Date: 20191219
  Receipt Date: 20200102
  Transmission Date: 20200409
  Serious: No
  Sender: FDA-Public Use
  Company Number: US-MTPC-MTDA2019-0081954

PATIENT

DRUGS (1)
  1. RADICAVA [Suspect]
     Active Substance: EDARAVONE
     Indication: PRODUCT USED FOR UNKNOWN INDICATION
     Dosage: UNK, 10 CONSECUTIVE DAYS FOLLOWED IMMEDIATELY BY 14 DAYS DRUG-FREE, THEN RESUMING 10 CONSECUTIVE DAY
     Route: 042

REACTIONS (1)
  - Inappropriate schedule of product administration [Unknown]
